FAERS Safety Report 6746534-6 (Version None)
Quarter: 2010Q2

REPORT INFORMATION
  Report Type: 
  Country: None (occurrence: None)
  Receive Date: 20100528
  Receipt Date: 20100311
  Transmission Date: 20101027
  Serious: No
  Sender: FDA-Public Use
  Company Number: US-ASTRAZENECA-2010SE11456

PATIENT

DRUGS (3)
  1. PRILOSEC OTC [Suspect]
     Dosage: 1 TABLET, 1 /DAY FOR 14 DAYS
     Route: 048
     Dates: start: 20100225, end: 20100310
  2. TYLENOL (CAPLET) [Concomitant]
  3. VITAMINS /90003601/ [Concomitant]

REACTIONS (5)
  - ABDOMINAL PAIN UPPER [None]
  - CONDITION AGGRAVATED [None]
  - DRY THROAT [None]
  - HEADACHE [None]
  - MUSCULOSKELETAL STIFFNESS [None]
